FAERS Safety Report 6837204 (Version 22)
Quarter: 2013Q3

REPORT INFORMATION
  Report Type: Spontaneous
  Country: US (occurrence: US)
  Receive Date: 20081208
  Receipt Date: 20130923
  Transmission Date: 20140515
  Serious: Yes (Other)
  Sender: FDA-Public Use
  Company Number: PHEH2008US10676

PATIENT
  Age: 56 Year
  Sex: Female
  Weight: 56 kg

DRUGS (68)
  1. ZOMETA [Suspect]
     Indication: BONE LOSS
     Dosage: QMO
     Dates: start: 2000, end: 2006
  2. ZOMETA [Suspect]
     Indication: OSTEOPOROSIS
  3. AREDIA [Suspect]
     Indication: METASTASES TO BONE
     Dosage: QMO
     Route: 042
     Dates: start: 199906, end: 2000
  4. AREDIA [Suspect]
     Indication: OSTEOPOROSIS
  5. AREDIA [Suspect]
     Indication: BONE LOSS
  6. OXYCODONE [Concomitant]
     Dosage: 5 MG, PRN
     Route: 048
  7. RANITIDINE [Concomitant]
     Dosage: 150 MG,
     Route: 048
  8. METHYLPREDNISOLONE [Concomitant]
     Dosage: 4 MG,
     Route: 048
  9. PROPOXYPHENE HCL AND ACETAMINOPHEN [Concomitant]
     Dosage: 100 MG,
     Route: 048
  10. CYCLOBENZAPRINE [Concomitant]
     Dosage: 10 MG,
     Route: 048
  11. RETIN A [Concomitant]
     Dosage: 0.05 %,
     Route: 061
  12. DIPROLENE [Concomitant]
     Dosage: .05 %,
  13. BIAXIN [Concomitant]
     Dosage: 500 MG,
     Route: 048
  14. HALOTUSSIN [Concomitant]
     Route: 048
  15. ALPRAZOLAM [Concomitant]
     Dosage: .25 MG,
     Route: 048
  16. ADIPEX [Concomitant]
     Dosage: 37.5 MG,
     Route: 048
  17. CELEBREX [Concomitant]
     Dosage: 200 MG,
     Route: 048
  18. PERCOCET [Concomitant]
     Dosage: 7.5 MG,
     Route: 048
  19. LORAZEPAM [Concomitant]
     Dosage: 1 MG,
     Route: 048
  20. AMOXICILLIN [Concomitant]
     Dosage: 500 MG,
     Route: 048
  21. AMBIEN [Concomitant]
     Dosage: 10 MG,
     Route: 048
  22. LEVAQUIN [Concomitant]
     Dosage: 500 MG,
     Route: 048
  23. LIPITOR                                 /NET/ [Concomitant]
     Dosage: 20 MG,
     Route: 048
  24. PAXIL [Concomitant]
     Dosage: 20 MG,
  25. WARFARIN [Concomitant]
     Dosage: 1 MG,
     Route: 048
  26. FEMARA [Concomitant]
     Dosage: 2.5 MG,
     Route: 048
  27. ARIMIDEX ^ASTRAZENECA^ [Concomitant]
  28. POTASSIUM [Concomitant]
  29. SODIUM CHLORIDE [Concomitant]
  30. PREVACID [Concomitant]
  31. CREON [Concomitant]
  32. MAGNESIUM [Concomitant]
  33. UROCIT-K [Concomitant]
  34. COUMADIN ^BOOTS^ [Concomitant]
  35. AROMASIN [Concomitant]
  36. WELCHOL [Concomitant]
  37. DIGITEK [Concomitant]
  38. METOCLOPRAMIDE [Concomitant]
  39. HYDROCORTISONE [Concomitant]
  40. PROCRIT                            /00909301/ [Concomitant]
  41. TAMOXIFEN [Concomitant]
     Dates: start: 199906, end: 200201
  42. K-DUR [Concomitant]
  43. PROMETHAZINE [Concomitant]
  44. PREDNISONE [Concomitant]
  45. CYTOXAN [Concomitant]
  46. SELENIUM [Concomitant]
  47. CHEMOTHERAPEUTICS NOS [Concomitant]
  48. LORTAB [Concomitant]
  49. CALCIUM [Concomitant]
  50. VITAMINS [Concomitant]
  51. DECADRON                                /CAN/ [Concomitant]
  52. PRILOSEC [Concomitant]
  53. PEPCID [Concomitant]
  54. HEPARIN [Concomitant]
  55. AFRIN                              /00070002/ [Concomitant]
  56. LOVENOX [Concomitant]
  57. NAPROXEN [Concomitant]
  58. TYLENOL [Concomitant]
  59. NAPROSYN [Concomitant]
  60. DILAUDID [Concomitant]
     Dosage: 0.4 MG, PRN
     Route: 042
  61. ZOFRAN [Concomitant]
     Dosage: 4 MG, Q6H, PRN
     Route: 042
  62. COLACE [Concomitant]
     Dosage: 100 MG, BID
  63. DIFLUCAN [Concomitant]
     Dosage: 100 MG, QD
     Route: 048
  64. NEXIUM [Concomitant]
     Dosage: 40 MG, QD
     Route: 048
  65. AUGMENTIN [Concomitant]
     Dosage: 875 MG, TID, PRN
  66. KLOR-CON [Concomitant]
     Dosage: 10 MEQ, QID
  67. ATRACURIUM [Concomitant]
  68. CALCITONIN [Concomitant]

REACTIONS (97)
  - Osteonecrosis of jaw [Unknown]
  - Anaemia of malignant disease [Unknown]
  - Osteonecrosis [Not Recovered/Not Resolved]
  - Hypotension [Unknown]
  - Herpes zoster [Unknown]
  - Osteopenia [Unknown]
  - Joint effusion [Unknown]
  - Arthralgia [Unknown]
  - Gait disturbance [Unknown]
  - Lung disorder [Unknown]
  - Basal cell carcinoma [Unknown]
  - Pulmonary mass [Unknown]
  - Spinal osteoarthritis [Unknown]
  - Spondylolisthesis [Unknown]
  - Bone lesion [Unknown]
  - Scoliosis [Unknown]
  - Musculoskeletal chest pain [Unknown]
  - Osteosclerosis [Unknown]
  - Intervertebral disc degeneration [Unknown]
  - Spinal fracture [Unknown]
  - Spinal compression fracture [Unknown]
  - Rib fracture [Unknown]
  - Back pain [Unknown]
  - Pulmonary granuloma [Unknown]
  - Rash [Unknown]
  - Pruritus [Not Recovered/Not Resolved]
  - Erythema [Recovered/Resolved]
  - Hypoglycaemia [Unknown]
  - Bullous lung disease [Unknown]
  - Weight decreased [Unknown]
  - Pancreatitis acute [Unknown]
  - Metabolic acidosis [Unknown]
  - Renal tubular acidosis [Unknown]
  - Renal failure [Recovering/Resolving]
  - Nephritic syndrome [Unknown]
  - Adrenal insufficiency [Unknown]
  - Asthenia [Unknown]
  - Diarrhoea [Recovering/Resolving]
  - Decreased appetite [Unknown]
  - Nausea [Unknown]
  - Chronic sinusitis [Unknown]
  - Fatigue [Unknown]
  - Malaise [Unknown]
  - Local swelling [Unknown]
  - Metastases to bone [Unknown]
  - Upper limb fracture [Unknown]
  - Hypokalaemia [Unknown]
  - Renal lipomatosis [Unknown]
  - Prothrombin time prolonged [Unknown]
  - Leukocytosis [Unknown]
  - Hypoalbuminaemia [Unknown]
  - Pleural effusion [Unknown]
  - Lung infiltration [Unknown]
  - Lobar pneumonia [Recovering/Resolving]
  - Influenza [Recovering/Resolving]
  - Duodenal polyp [Unknown]
  - Renal failure chronic [Unknown]
  - Proteinuria [Unknown]
  - Malnutrition [Unknown]
  - Actinic keratosis [Unknown]
  - Lipoma [Unknown]
  - Presyncope [Unknown]
  - Chronic obstructive pulmonary disease [Unknown]
  - Osteomyelitis [Unknown]
  - Syncope [Unknown]
  - Exposed bone in jaw [Unknown]
  - Hypertension [Unknown]
  - Pain in jaw [Unknown]
  - Cardiomegaly [Unknown]
  - Arteriosclerosis [Unknown]
  - Hypercoagulation [Unknown]
  - Metastases to bone marrow [Unknown]
  - Kyphosis [Unknown]
  - Dystrophic calcification [Unknown]
  - Swelling face [Unknown]
  - Venous insufficiency [Unknown]
  - Phlebitis [Unknown]
  - Insomnia [Unknown]
  - Lymphadenopathy [Unknown]
  - Intervertebral disc space narrowing [Unknown]
  - Febrile neutropenia [Unknown]
  - Myelodysplastic syndrome [Unknown]
  - Deep vein thrombosis [Not Recovered/Not Resolved]
  - Drug intolerance [Unknown]
  - Pancytopenia [Unknown]
  - Dysplasia [Unknown]
  - Cytogenetic abnormality [Unknown]
  - Thrombocytopenia [Not Recovered/Not Resolved]
  - Anaemia macrocytic [Not Recovered/Not Resolved]
  - Interstitial lung disease [Unknown]
  - Bone pain [Not Recovered/Not Resolved]
  - Pyrexia [Unknown]
  - Cough [Unknown]
  - Tachycardia [Unknown]
  - Ulcer [Unknown]
  - Osteoarthritis [Unknown]
  - Diabetes mellitus [Unknown]
